FAERS Safety Report 14846182 (Version 1)
Quarter: 2018Q2

REPORT INFORMATION
  Report Type: Spontaneous
  Country: FR (occurrence: FR)
  Receive Date: 20180504
  Receipt Date: 20180504
  Transmission Date: 20180711
  Serious: Yes (Other)
  Sender: FDA-Public Use
  Company Number: FR-MERCK KGAA-2047190

PATIENT
  Age: 49 Year
  Sex: Female

DRUGS (1)
  1. NOVOTHYROX [Suspect]
     Active Substance: LEVOTHYROXINE SODIUM
     Indication: PRODUCT USED FOR UNKNOWN INDICATION

REACTIONS (17)
  - Alopecia [None]
  - Somnolence [None]
  - Abnormal behaviour [None]
  - Fatigue [None]
  - Dyspnoea [None]
  - Social avoidant behaviour [None]
  - Suicidal ideation [None]
  - Back pain [None]
  - Crying [None]
  - Heart rate increased [None]
  - Weight increased [None]
  - Feeling cold [None]
  - Mood swings [None]
  - Amnesia [None]
  - General physical health deterioration [None]
  - Paraesthesia [None]
  - Blood thyroid stimulating hormone decreased [Recovered/Resolved]

NARRATIVE: CASE EVENT DATE: 20170424
